FAERS Safety Report 11280083 (Version 1)
Quarter: 2015Q3

REPORT INFORMATION
  Report Type: Spontaneous
  Country: PE (occurrence: PE)
  Receive Date: 20150717
  Receipt Date: 20150717
  Transmission Date: 20151125
  Serious: Yes (Death, Other)
  Sender: FDA-Public Use
  Company Number: PE-APOTEX-2015AP010544

PATIENT

DRUGS (1)
  1. PAXIL [Suspect]
     Active Substance: PAROXETINE HYDROCHLORIDE
     Indication: DEPRESSION
     Dosage: 20 MG, BID
     Route: 048
     Dates: start: 20130905

REACTIONS (1)
  - Death [Fatal]

NARRATIVE: CASE EVENT DATE: 201506
